FAERS Safety Report 12496359 (Version 1)
Quarter: 2016Q2

REPORT INFORMATION
  Report Type: Spontaneous
  Country: US (occurrence: US)
  Receive Date: 20160624
  Receipt Date: 20160624
  Transmission Date: 20160815
  Serious: No
  Sender: FDA-Public Use
  Company Number: US-JNJFOC-20160520444

PATIENT
  Age: 77 Year
  Sex: Female
  Weight: 73.48 kg

DRUGS (17)
  1. PREVALITE [Concomitant]
     Active Substance: CHOLESTYRAMINE
     Indication: BILE ACID MALABSORPTION
     Route: 065
  2. FISH OIL [Concomitant]
     Active Substance: FISH OIL
     Indication: ROUTINE HEALTH MAINTENANCE
     Dosage: 10 YEARS
     Route: 065
  3. IMODIUM MULTI-SYMPTOM RELIEF [Suspect]
     Active Substance: DIMETHICONE\LOPERAMIDE HYDROCHLORIDE
     Route: 048
  4. IMODIUM MULTI-SYMPTOM RELIEF [Suspect]
     Active Substance: DIMETHICONE\LOPERAMIDE HYDROCHLORIDE
     Indication: BILE ACID MALABSORPTION
     Route: 048
  5. TYLENOL [Concomitant]
     Active Substance: ACETAMINOPHEN
     Indication: ARTHRITIS
     Dosage: 10 YEARS
     Route: 065
  6. CELEBREX [Concomitant]
     Active Substance: CELECOXIB
     Indication: ARTHRITIS
     Dosage: 10 YEARS
     Route: 065
  7. IMODIUM MULTI-SYMPTOM RELIEF [Suspect]
     Active Substance: DIMETHICONE\LOPERAMIDE HYDROCHLORIDE
     Indication: BILE ACID MALABSORPTION
     Route: 048
     Dates: start: 20160516
  8. METOPROLOL. [Concomitant]
     Active Substance: METOPROLOL
     Indication: HYPERTENSION
     Dosage: 10 YEARS
     Route: 065
  9. ASPIRIN. [Concomitant]
     Active Substance: ASPIRIN
     Indication: CARDIAC DISORDER
     Dosage: 10 YEARS
     Route: 065
  10. CENTRUM [Concomitant]
     Active Substance: VITAMINS
     Indication: UNEVALUABLE EVENT
     Dosage: 10 YEARS
     Route: 065
  11. LEVOTHROID [Concomitant]
     Active Substance: LEVOTHYROXINE SODIUM
     Indication: HYPOTHYROIDISM
     Dosage: DOSE: 0.75; 10 YEARS
     Route: 065
  12. LIPITOR [Concomitant]
     Active Substance: ATORVASTATIN CALCIUM
     Indication: BLOOD CHOLESTEROL INCREASED
     Dosage: 10 YEARS
     Route: 065
  13. PREMARIN [Concomitant]
     Active Substance: ESTROGENS, CONJUGATED
     Indication: HORMONE LEVEL ABNORMAL
     Dosage: 10 YEARS
     Route: 065
  14. NEXIUM [Concomitant]
     Active Substance: ESOMEPRAZOLE MAGNESIUM
     Indication: GASTROOESOPHAGEAL REFLUX DISEASE
     Dosage: 10 YEARS
     Route: 065
  15. IMODIUM MULTI-SYMPTOM RELIEF [Suspect]
     Active Substance: DIMETHICONE\LOPERAMIDE HYDROCHLORIDE
     Indication: BILE ACID MALABSORPTION
     Dosage: TAKING TABLET AS NEEDED
     Route: 048
  16. AVAPRO [Concomitant]
     Active Substance: IRBESARTAN
     Indication: HYPERTENSION
     Dosage: 10 YEARS
     Route: 065
  17. LASIX [Concomitant]
     Active Substance: FUROSEMIDE
     Indication: URINARY TRACT DISORDER
     Dosage: 10 YEARS
     Route: 065

REACTIONS (7)
  - Product difficult to swallow [Unknown]
  - Wrong technique in product usage process [Unknown]
  - Constipation [Unknown]
  - Product packaging issue [Unknown]
  - Drug ineffective [Unknown]
  - Product use issue [Unknown]
  - Off label use [Unknown]

NARRATIVE: CASE EVENT DATE: 20160516
